FAERS Safety Report 8285289-3 (Version None)
Quarter: 2012Q2

REPORT INFORMATION
  Report Type: 
  Country: None (occurrence: None)
  Receive Date: 20120413
  Receipt Date: 20120329
  Transmission Date: 20120825
  Serious: Yes (Other)
  Sender: FDA-Public Use
  Company Number: CHPA2012US006430

PATIENT
  Age: 71 Year
  Sex: Female

DRUGS (1)
  1. EXCEDRIN EXTRA STRENGTH TABLETS [Suspect]
     Indication: PAIN
     Dosage: 2 DF, UNK
     Route: 048

REACTIONS (2)
  - INCORRECT DRUG ADMINISTRATION DURATION [None]
  - PARKINSON'S DISEASE [None]
